FAERS Safety Report 6281478-8 (Version None)
Quarter: 2009Q3

REPORT INFORMATION
  Report Type: 
  Country: None (occurrence: None)
  Receive Date: 20090724
  Receipt Date: 20090508
  Transmission Date: 20100115
  Serious: Yes (Hospitalization)
  Sender: FDA-Public Use
  Company Number: A0784388A

PATIENT
  Age: 45 Year
  Sex: Male
  Weight: 218.2 kg

DRUGS (2)
  1. AVANDIA [Suspect]
     Indication: DIABETES MELLITUS
     Dosage: 4MG TWICE PER DAY
     Route: 048
     Dates: start: 20030101, end: 20070517
  2. METFORMIN HCL [Concomitant]

REACTIONS (1)
  - CARDIAC FAILURE CONGESTIVE [None]
